FAERS Safety Report 20637940 (Version 1)
Quarter: 2022Q1

REPORT INFORMATION
  Report Type: Spontaneous
  Country: US (occurrence: None)
  Receive Date: 20220324
  Receipt Date: 20220324
  Transmission Date: 20220424
  Serious: Yes (Hospitalization, Other)
  Sender: FDA-Public Use
  Company Number: None

PATIENT
  Age: 36 Year
  Sex: Female
  Weight: 70.31 kg

DRUGS (3)
  1. ESCITALOPRAM [Suspect]
     Active Substance: ESCITALOPRAM OXALATE
  2. METFORMIN [Suspect]
     Active Substance: METFORMIN HYDROCHLORIDE
  3. INSULIN NOS [Suspect]
     Active Substance: INSULIN NOS

REACTIONS (4)
  - Gestational diabetes [None]
  - Pre-eclampsia [None]
  - Caesarean section [None]
  - Maternal exposure during pregnancy [None]

NARRATIVE: CASE EVENT DATE: 20201213
